FAERS Safety Report 5883812-7 (Version None)
Quarter: 2008Q3

REPORT INFORMATION
  Report Type: 
  Country: None (occurrence: None)
  Receive Date: 20080915
  Receipt Date: 20080904
  Transmission Date: 20090109
  Serious: Yes (Hospitalization)
  Sender: FDA-Public Use
  Company Number: A0743995A

PATIENT
  Sex: Female
  Weight: 131.4 kg

DRUGS (2)
  1. AVANDIA [Suspect]
     Route: 048
  2. AVANDARYL [Suspect]
     Dosage: 4MG UNKNOWN
     Route: 065

REACTIONS (7)
  - BLISTER [None]
  - CARDIAC DISORDER [None]
  - CARDIAC FAILURE CONGESTIVE [None]
  - CARDIOVASCULAR DISORDER [None]
  - HEART INJURY [None]
  - OEDEMA [None]
  - RENAL FAILURE [None]
